FAERS Safety Report 5189073-9 (Version None)
Quarter: 2006Q4

REPORT INFORMATION
  Report Type: 
  Country: None (occurrence: None)
  Receive Date: 20061215
  Receipt Date: 20061106
  Transmission Date: 20070319
  Serious: No
  Sender: FDA-Public Use
  Company Number: COM # 06-179

PATIENT
  Sex: Male

DRUGS (1)
  1. METOPROLOL TARTRATE [Suspect]
     Indication: HYPERTENSION

REACTIONS (2)
  - DIZZINESS POSTURAL [None]
  - PHARMACEUTICAL PRODUCT COMPLAINT [None]
